FAERS Safety Report 24703164 (Version 4)
Quarter: 2025Q1

REPORT INFORMATION
  Report Type: Spontaneous
  Country: US (occurrence: US)
  Receive Date: 20241205
  Receipt Date: 20250127
  Transmission Date: 20250409
  Serious: No
  Sender: PFIZER
  Company Number: US-PFIZER INC-202400308323

PATIENT
  Age: 52 Year
  Sex: Male

DRUGS (1)
  1. GENOTROPIN [Suspect]
     Active Substance: SOMATROPIN
     Dosage: 2 MG, DAILY

REACTIONS (6)
  - Device mechanical issue [Unknown]
  - Device use issue [Unknown]
  - Product physical issue [Unknown]
  - Device difficult to use [Unknown]
  - Poor quality device used [Unknown]
  - Drug dose omission by device [Unknown]
